FAERS Safety Report 6076568-9 (Version None)
Quarter: 2009Q1

REPORT INFORMATION
  Report Type: 
  Country: None (occurrence: None)
  Receive Date: 20090213
  Receipt Date: 20090210
  Transmission Date: 20090719
  Serious: Yes (Congenital Anomaly, Other)
  Sender: FDA-Public Use
  Company Number: FR-BRISTOL-MYERS SQUIBB COMPANY-14332951

PATIENT
  Age: 34 Year
  Sex: Female
  Weight: 92 kg

DRUGS (7)
  1. REYATAZ [Suspect]
     Indication: HIV INFECTION
     Dosage: PTC TO DELIVERY
     Route: 048
     Dates: start: 20070217, end: 20070703
  2. SUSTIVA [Suspect]
     Indication: HIV INFECTION
     Dosage: PTC TO 3 DAYS 3 MONTHS PRIOR TO (LMP)
     Route: 048
     Dates: start: 20060914, end: 20070217
  3. TRUVADA [Suspect]
     Indication: HIV INFECTION
     Dosage: PTC TO DELIVERY
     Route: 048
     Dates: start: 20060914
  4. NORVIR [Suspect]
     Indication: HIV INFECTION
     Dosage: PTC TO DELIVERY
     Route: 048
     Dates: start: 20070217, end: 20070703
  5. KALETRA [Suspect]
     Indication: HIV INFECTION
     Route: 048
  6. DOLIPRANE [Concomitant]
  7. GAVISCON [Concomitant]

REACTIONS (5)
  - ABORTION INDUCED [None]
  - OLIGOHYDRAMNIOS [None]
  - PREGNANCY [None]
  - RENAL DYSPLASIA [None]
  - URINARY TRACT OBSTRUCTION [None]
